FAERS Safety Report 6972828-5 (Version None)
Quarter: 2010Q3

REPORT INFORMATION
  Report Type: 
  Country: None (occurrence: None)
  Receive Date: 20100909
  Receipt Date: 20100826
  Transmission Date: 20110219
  Serious: Yes (Hospitalization)
  Sender: FDA-Public Use
  Company Number: US-SANOFI-AVENTIS-2010SA049682

PATIENT
  Age: 51 Year
  Sex: Female
  Weight: 123 kg

DRUGS (9)
  1. MULTAQ [Suspect]
     Indication: ATRIAL FIBRILLATION
     Route: 048
     Dates: start: 20100804, end: 20100816
  2. MULTAQ [Suspect]
     Route: 048
     Dates: start: 20100819
  3. LIPITOR [Concomitant]
     Indication: LIPIDS INCREASED
  4. BENICAR [Concomitant]
     Indication: HYPERTENSION
     Dosage: 40/25MG
  5. FEXOFENADINE HCL [Concomitant]
  6. TOPROL-XL [Concomitant]
     Indication: ATRIAL FIBRILLATION
  7. METFORMIN [Concomitant]
     Indication: DIABETES MELLITUS
  8. FLUOXETINE [Concomitant]
  9. COUMADIN [Concomitant]

REACTIONS (9)
  - ABDOMINAL PAIN [None]
  - ALANINE AMINOTRANSFERASE INCREASED [None]
  - ASPARTATE AMINOTRANSFERASE INCREASED [None]
  - BILIRUBIN CONJUGATED INCREASED [None]
  - BLOOD ALBUMIN DECREASED [None]
  - BLOOD ALKALINE PHOSPHATASE INCREASED [None]
  - BLOOD BILIRUBIN INCREASED [None]
  - JAUNDICE [None]
  - PYREXIA [None]
